FAERS Safety Report 8252152-3 (Version None)
Quarter: 2012Q2

REPORT INFORMATION
  Report Type: 
  Country: None (occurrence: None)
  Receive Date: 20120402
  Receipt Date: 20110418
  Transmission Date: 20120825
  Serious: No
  Sender: FDA-Public Use
  Company Number: US-ABBOTT-11P-163-0804453-00

PATIENT
  Sex: Male
  Weight: 79.545 kg

DRUGS (5)
  1. METOPROLOL TARTRATE [Concomitant]
     Indication: HEART RATE DECREASED
     Dosage: DAILY DOSE: 25 MILLIGRAM(S)
     Route: 065
  2. SAMBUCOL BLACK ELDERBERRY [Concomitant]
     Indication: IMMUNE SYSTEM DISORDER
     Dosage: DAILY DOSE:  2 TABLESPOONS A DAY; FORM OF ADMINISTRATION: LIQUID
     Route: 065
  3. LISINOPRIL [Concomitant]
     Indication: HYPERTENSION
     Dosage: DAILY DOSE: 40 MILLIGRAM(S); FREQUENCY: EVERY MORNING
     Route: 065
  4. AMLODIPINE [Concomitant]
     Indication: HYPERTENSION
     Dosage: DAILY DOSE: 5 MILLIGRAM(S)
     Route: 065
  5. TESTOSTERONE [Suspect]
     Indication: BLOOD TESTOSTERONE DECREASED
     Dosage: DAILY DOSE:  UNKNOWN; AS USED: 2.5 GRAMS
     Route: 062
     Dates: start: 20080101

REACTIONS (4)
  - INAPPROPRIATE SCHEDULE OF DRUG ADMINISTRATION [None]
  - DRUG ADMINISTERED AT INAPPROPRIATE SITE [None]
  - MUSCULOSKELETAL PAIN [None]
  - JOINT SWELLING [None]
